FAERS Safety Report 21419110 (Version 1)
Quarter: 2022Q4

REPORT INFORMATION
  Report Type: Spontaneous
  Country: EG (occurrence: EG)
  Receive Date: 20221006
  Receipt Date: 20221006
  Transmission Date: 20230112
  Serious: Yes (Hospitalization)
  Sender: FDA-Public Use
  Company Number: EG-PFIZER INC-202101191400

PATIENT
  Age: 68 Year
  Sex: Male

DRUGS (4)
  1. SUTENT [Suspect]
     Active Substance: SUNITINIB MALATE
     Indication: Gastrointestinal stromal tumour
     Dosage: 37.5 MG, CYCLIC (2 TABS 12.5 MG ONCE PER DAY FOR 2 WEEKS ON AND 1 WEEK OFF)
     Route: 048
     Dates: start: 202108, end: 202108
  2. SUTENT [Suspect]
     Active Substance: SUNITINIB MALATE
     Dosage: 25 MG, CYCLIC (2 TABS 12.5 MG ONCE PER DAY FOR 2 WEEKS ON AND 1 WEEK OFF)
     Route: 048
     Dates: start: 202108, end: 202108
  3. SUTENT [Suspect]
     Active Substance: SUNITINIB MALATE
     Dosage: 37.5 MG, CYCLIC (37.5MG TO BE TAKEN 4 WEEKS ON AND 2 WEEKS OFF)
     Route: 048
     Dates: start: 202108
  4. SUTENT [Suspect]
     Active Substance: SUNITINIB MALATE
     Dosage: 25 MG, CYCLIC (2 TABS ONCE PER DAY FOR 4 WEEKS ON AND 2 WEEKS OFF)
     Route: 048
     Dates: start: 202108

REACTIONS (1)
  - Urethritis noninfective [Not Recovered/Not Resolved]
